FAERS Safety Report 24132074 (Version 1)
Quarter: 2024Q3

REPORT INFORMATION
  Report Type: Spontaneous
  Country: US (occurrence: US)
  Receive Date: 20240724
  Receipt Date: 20240724
  Transmission Date: 20241016
  Serious: Yes (Death, Other)
  Sender: PFIZER
  Company Number: US-PFIZER INC-202400221198

PATIENT
  Age: 80 Year
  Sex: Female
  Weight: 45.36 kg

DRUGS (1)
  1. VYNDAMAX [Suspect]
     Active Substance: TAFAMIDIS
     Indication: Familial amyloidosis
     Dosage: 61 MG, 1X/DAY
     Route: 048
     Dates: start: 202201

REACTIONS (3)
  - Renal failure [Fatal]
  - Cardiac failure [Fatal]
  - Expired product administered [Unknown]

NARRATIVE: CASE EVENT DATE: 20240101
